FAERS Safety Report 17436190 (Version 1)
Quarter: 2020Q1

REPORT INFORMATION
  Report Type: Spontaneous
  Country: DE (occurrence: DE)
  Receive Date: 20200219
  Receipt Date: 20200219
  Transmission Date: 20200409
  Serious: Yes (Other)
  Sender: FDA-Public Use
  Company Number: DE-TEVA-2020-DE-1186085

PATIENT
  Age: 57 Year
  Sex: Male
  Weight: 100 kg

DRUGS (1)
  1. OCTREO RATIOPHARM 30 [Suspect]
     Active Substance: OCTREOTIDE
     Dosage: ADMINISTERED TWO TIMES: 22-10-2019 AND 19-11-2019
     Route: 065
     Dates: start: 20191022, end: 20191119

REACTIONS (6)
  - Monoplegia [Recovered/Resolved]
  - Injection site swelling [Recovered/Resolved]
  - Injection site pain [Recovered/Resolved]
  - Tenderness [Recovered/Resolved]
  - Injection site induration [Recovered/Resolved]
  - Injection site warmth [Recovered/Resolved]

NARRATIVE: CASE EVENT DATE: 20191120
